FAERS Safety Report 12652476 (Version 1)
Quarter: 2016Q3

REPORT INFORMATION
  Report Type: Spontaneous
  Country: US (occurrence: US)
  Receive Date: 20160815
  Receipt Date: 20160815
  Transmission Date: 20161109
  Serious: No
  Sender: FDA-Public Use
  Company Number: US-PFIZER INC-2016379423

PATIENT
  Age: 58 Year
  Sex: Female
  Weight: 54 kg

DRUGS (6)
  1. CLONAZEPAM. [Concomitant]
     Active Substance: CLONAZEPAM
     Dosage: 1.5 MG (THREE 0.5MG TABLETS), DAILY
     Route: 048
  2. GAMUNEX [Concomitant]
     Active Substance: HUMAN IMMUNOGLOBULIN G
     Indication: OSTEOPOROSIS
     Dosage: 40 UG, MONTHLY
     Route: 042
  3. GABAPENTIN. [Suspect]
     Active Substance: GABAPENTIN
     Dosage: 100 MG, 1X/DAY
  4. PREMPRO [Concomitant]
     Active Substance: ESTROGENS, CONJUGATED\MEDROXYPROGESTERONE ACETATE
     Indication: OSTEOPOROSIS
     Dosage: UNK
  5. CLONAZEPAM. [Concomitant]
     Active Substance: CLONAZEPAM
     Dosage: 1 MG (TWO 0.5MG TABLETS), DAILY
     Route: 048
  6. GABAPENTIN. [Suspect]
     Active Substance: GABAPENTIN
     Indication: OSTEOPENIA
     Dosage: 100 MG, 3X/DAY
     Dates: start: 20160803

REACTIONS (5)
  - Somnolence [Unknown]
  - Diplopia [Recovered/Resolved]
  - Gait disturbance [Recovered/Resolved]
  - Feeling drunk [Recovered/Resolved]
  - Product use issue [Unknown]

NARRATIVE: CASE EVENT DATE: 201608
